FAERS Safety Report 7200417-6 (Version None)
Quarter: 2010Q4

REPORT INFORMATION
  Report Type: 
  Country: None (occurrence: None)
  Receive Date: 20101214
  Receipt Date: 20101206
  Transmission Date: 20110411
  Serious: Yes (Other)
  Sender: FDA-Public Use
  Company Number: FRP10001242

PATIENT
  Age: 63 Year
  Sex: Female

DRUGS (3)
  1. ACTONEL [Suspect]
     Indication: OSTEOPOROSIS
     Dosage: 35 MG, 1 /WEEK, ORAL
     Route: 048
     Dates: start: 20080101, end: 20080601
  2. ARAVA [Suspect]
     Indication: RHEUMATOID ARTHRITIS
     Dosage: 20 MG, 1 /DAY, ORAL
     Route: 048
     Dates: start: 20080101, end: 20100201
  3. NOVATREX /00113801/ (METHOTREXATE) 2.5MG [Suspect]
     Indication: RHEUMATOID ARTHRITIS
     Dosage: 2.5 MG, 1 /DAY
     Dates: end: 20080101

REACTIONS (1)
  - DEMYELINATING POLYNEUROPATHY [None]
